FAERS Safety Report 20458653 (Version 1)
Quarter: 2022Q1

REPORT INFORMATION
  Report Type: Spontaneous
  Country: US (occurrence: US)
  Receive Date: 20220211
  Receipt Date: 20220211
  Transmission Date: 20220423
  Serious: Yes (Other)
  Sender: FDA-Public Use
  Company Number: US-BEH-2022141759

PATIENT
  Sex: Male

DRUGS (1)
  1. HAEGARDA [Suspect]
     Active Substance: HUMAN C1-ESTERASE INHIBITOR
     Indication: Prophylaxis
     Dosage: 7000 INTERNATIONAL UNIT, QW
     Route: 065

REACTIONS (4)
  - Hereditary angioedema [Unknown]
  - Insurance issue [Unknown]
  - Hypotension [Unknown]
  - Tachycardia [Unknown]
